FAERS Safety Report 7075529-0 (Version None)
Quarter: 2010Q4

REPORT INFORMATION
  Report Type: 
  Country: None (occurrence: None)
  Receive Date: 20101030
  Receipt Date: 20101001
  Transmission Date: 20110411
  Serious: No
  Sender: FDA-Public Use
  Company Number: US-WYE-H17969110

PATIENT
  Sex: Female
  Weight: 43.13 kg

DRUGS (3)
  1. PRISTIQ [Suspect]
     Indication: DEPRESSION
     Route: 048
     Dates: start: 20100929
  2. CALCIUM [Concomitant]
  3. IMITREX [Concomitant]

REACTIONS (1)
  - VISION BLURRED [None]
